FAERS Safety Report 9784534 (Version 1)
Quarter: 2013Q4

REPORT INFORMATION
  Report Type: Spontaneous
  Country: GB (occurrence: GB)
  Receive Date: 20131226
  Receipt Date: 20131226
  Transmission Date: 20140711
  Serious: Yes (Other)
  Sender: FDA-Public Use
  Company Number: GB-UCBSA-106513

PATIENT
  Age: 42 Year
  Sex: Male
  Weight: 105 kg

DRUGS (12)
  1. KEPPRA [Suspect]
     Indication: EPILEPSY
     Route: 048
     Dates: start: 20130418, end: 20131128
  2. ADCAL-D3 [Concomitant]
  3. ASACOL MR [Concomitant]
  4. ATROVENT [Concomitant]
  5. AZATHIOPRINE [Concomitant]
  6. BACLOFEN [Concomitant]
  7. CODEINE [Concomitant]
  8. FENTANYL [Concomitant]
  9. FEXOFENADINE [Concomitant]
  10. MONTELUKAST [Concomitant]
  11. PANTOPRAZOLE [Concomitant]
  12. SALMETEROL [Concomitant]

REACTIONS (3)
  - Abnormal behaviour [Recovering/Resolving]
  - Deafness unilateral [Recovering/Resolving]
  - Aggression [Recovering/Resolving]
